FAERS Safety Report 6761518-X (Version None)
Quarter: 2010Q2

REPORT INFORMATION
  Report Type: 
  Country: None (occurrence: None)
  Receive Date: 20100607
  Receipt Date: 20100525
  Transmission Date: 20101027
  Serious: Yes (Hospitalization)
  Sender: FDA-Public Use
  Company Number: ALA_00491_2010

PATIENT
  Age: 14 Year
  Sex: Female

DRUGS (1)
  1. COLYTE [Suspect]
     Indication: DRUG USE FOR UNKNOWN INDICATION
     Dosage: DF, NASOGASTRIC TUBE
     Dates: start: 20100501, end: 20100501

REACTIONS (1)
  - INCORRECT ROUTE OF DRUG ADMINISTRATION [None]
